FAERS Safety Report 6670852-3 (Version None)
Quarter: 2010Q2

REPORT INFORMATION
  Report Type: 
  Country: None (occurrence: None)
  Receive Date: 20100407
  Receipt Date: 20100330
  Transmission Date: 20101027
  Serious: Yes (Hospitalization, Other)
  Sender: FDA-Public Use
  Company Number: US-BRISTOL-MYERS SQUIBB COMPANY-14984496

PATIENT
  Age: 63 Year
  Sex: Male

DRUGS (3)
  1. ABILIFY [Suspect]
     Indication: MAJOR DEPRESSION
     Dosage: INITIAL LOW DOSE FOR 1WEEK;FROM 17NOV09 5MG
     Route: 048
     Dates: start: 20091110, end: 20100302
  2. PAXIL [Suspect]
     Dosage: DECREASED TO 30MG FOR 2WEEKS
     Dates: start: 20091117, end: 20100302
  3. EFFEXOR XR [Suspect]
     Indication: DEPRESSION
     Dosage: 1DF=150(UNITS NOT SPECIFIED)
     Route: 048
     Dates: start: 20091117

REACTIONS (4)
  - CEREBRAL HAEMORRHAGE [None]
  - CONVULSION [None]
  - FALL [None]
  - JOINT DISLOCATION [None]
